FAERS Safety Report 8252683-6 (Version None)
Quarter: 2012Q2

REPORT INFORMATION
  Report Type: 
  Country: None (occurrence: None)
  Receive Date: 20120402
  Receipt Date: 20110823
  Transmission Date: 20120825
  Serious: No
  Sender: FDA-Public Use
  Company Number: US-ABBOTT-11P-163-0848657-00

PATIENT
  Age: 40 Year
  Sex: Male
  Weight: 86.26 kg

DRUGS (3)
  1. FENOFIBRATE [Concomitant]
     Indication: BLOOD CHOLESTEROL INCREASED
  2. ANDROGEL [Suspect]
     Indication: BLOOD TESTOSTERONE DECREASED
     Dosage: 4 PUMPS DAILY
     Route: 061
     Dates: start: 20101101
  3. ANDROGEL [Suspect]
     Route: 061
     Dates: start: 20110601

REACTIONS (3)
  - DYSURIA [None]
  - POLLAKIURIA [None]
  - URINE FLOW DECREASED [None]
